FAERS Safety Report 12596938 (Version 1)
Quarter: 2016Q3

REPORT INFORMATION
  Report Type: Spontaneous
  Country: US (occurrence: None)
  Receive Date: 20160726
  Receipt Date: 20160726
  Transmission Date: 20161109
  Serious: Yes (Other)
  Sender: FDA-Public Use
  Company Number: None

PATIENT
  Age: 33 Year
  Sex: Female

DRUGS (1)
  1. ONDANSETRON 24MG WEST WARD [Suspect]
     Active Substance: ONDANSETRON
     Indication: HYPEREMESIS GRAVIDARUM
     Dosage: DAILY, ADDED TO TPN OVER 24  CULIN PUMP VIA PICC LINE
     Dates: start: 20160625, end: 20160629

REACTIONS (2)
  - Anxiety [None]
  - Panic attack [None]

NARRATIVE: CASE EVENT DATE: 20160628
